FAERS Safety Report 8422290-0 (Version None)
Quarter: 2012Q2

REPORT INFORMATION
  Report Type: 
  Country: None (occurrence: None)
  Receive Date: 20120608
  Receipt Date: 20120530
  Transmission Date: 20120825
  Serious: Yes (Other)
  Sender: FDA-Public Use
  Company Number: CA-ROCHE-1073828

PATIENT
  Age: 12 Year
  Sex: Male

DRUGS (4)
  1. PREDNISONE TAB [Concomitant]
     Route: 065
  2. METHOTREXATE [Concomitant]
     Route: 065
  3. SAIZEN [Suspect]
     Indication: PRODUCT USED FOR UNKNOWN INDICATION
     Route: 051
  4. ACTEMRA [Suspect]
     Indication: PRODUCT USED FOR UNKNOWN INDICATION
     Route: 042

REACTIONS (6)
  - ARTHRALGIA [None]
  - DYSPHAGIA [None]
  - HEPATIC ENZYME INCREASED [None]
  - JOINT SWELLING [None]
  - LOCAL SWELLING [None]
  - DYSPNOEA [None]
